FAERS Safety Report 18304438 (Version 1)
Quarter: 2020Q3

REPORT INFORMATION
  Report Type: Spontaneous
  Country: FR (occurrence: FR)
  Receive Date: 20200924
  Receipt Date: 20200924
  Transmission Date: 20201103
  Serious: Yes (Other)
  Sender: FDA-Public Use
  Company Number: FR-ACCORD-202368

PATIENT
  Age: 64 Year
  Sex: Male

DRUGS (3)
  1. NEBIVOLOL. [Concomitant]
     Active Substance: NEBIVOLOL
  2. CARBOPLATIN. [Suspect]
     Active Substance: CARBOPLATIN
     Indication: URETERIC CANCER
     Route: 041
     Dates: start: 202006, end: 202006
  3. GEMCITABINE. [Concomitant]
     Active Substance: GEMCITABINE

REACTIONS (4)
  - Off label use [Unknown]
  - Dyspnoea [Recovered/Resolved]
  - Anaphylactic reaction [Recovered/Resolved]
  - Hypotension [Recovered/Resolved]

NARRATIVE: CASE EVENT DATE: 202006
